FAERS Safety Report 8451035-3 (Version None)
Quarter: 2012Q2

REPORT INFORMATION
  Report Type: 
  Country: None (occurrence: None)
  Receive Date: 20120620
  Receipt Date: 20120618
  Transmission Date: 20120825
  Serious: Yes (Other)
  Sender: FDA-Public Use
  Company Number: US-PFIZER INC-2012103488

PATIENT
  Sex: Female

DRUGS (2)
  1. NORVASC [Suspect]
     Dosage: 40 MG, DAILY
  2. LIPITOR [Suspect]
     Dosage: 40 MG, DAILY

REACTIONS (5)
  - DYSPHONIA [None]
  - MALAISE [None]
  - ARTHROPATHY [None]
  - GENERAL PHYSICAL HEALTH DETERIORATION [None]
  - HYPOACUSIS [None]
